FAERS Safety Report 9805824 (Version 2)
Quarter: 2014Q1

REPORT INFORMATION
  Report Type: Spontaneous
  Country: IN (occurrence: IN)
  Receive Date: 20140109
  Receipt Date: 20140109
  Transmission Date: 20141002
  Serious: Yes (Hospitalization)
  Sender: FDA-Public Use
  Company Number: IN-MERCK-1401IND000424

PATIENT
  Age: 53 Year
  Sex: Female

DRUGS (1)
  1. JANUVIA [Suspect]
     Dosage: 50 MG, QD  (1 TABLET DAILY)
     Route: 048

REACTIONS (3)
  - Aphagia [Not Recovered/Not Resolved]
  - Asthenia [Not Recovered/Not Resolved]
  - Vomiting [Not Recovered/Not Resolved]
